FAERS Safety Report 24081684 (Version 3)
Quarter: 2024Q3

REPORT INFORMATION
  Report Type: Spontaneous
  Country: TR (occurrence: TR)
  Receive Date: 20240712
  Receipt Date: 20240716
  Transmission Date: 20241017
  Serious: Yes (Hospitalization)
  Sender: STRIDES
  Company Number: None

PATIENT
  Age: 39 Year
  Sex: Male

DRUGS (1)
  1. DICLOFENAC [Suspect]
     Active Substance: DICLOFENAC
     Indication: Headache
     Dosage: UNK
     Route: 048

REACTIONS (5)
  - Coronary artery thrombosis [Recovered/Resolved]
  - Coronary artery dissection [Recovered/Resolved]
  - Kounis syndrome [Recovered/Resolved]
  - Coronary artery occlusion [Recovered/Resolved]
  - Off label use [Unknown]
